FAERS Safety Report 20909696 (Version 1)
Quarter: 2022Q2

REPORT INFORMATION
  Report Type: Spontaneous
  Country: US (occurrence: US)
  Receive Date: 20220603
  Receipt Date: 20220603
  Transmission Date: 20220721
  Serious: No
  Sender: FDA-Public Use
  Company Number: US-GLAXOSMITHKLINE-USCH2022019241

PATIENT

DRUGS (2)
  1. CHAPSTICK MOISTURIZER [Suspect]
     Active Substance: OCTINOXATE\OXYBENZONE\PETROLATUM
     Indication: Product used for unknown indication
     Dosage: UNK
  2. CHAPSTICK NOS [Suspect]
     Active Substance: AVOBENZONE\HOMOSALATE\OCTINOXATE\OCTISALATE\OCTOCRYLENE\OXYBENZONE\TITANIUM DIOXIDE\ZINC OXIDE
     Indication: Product used for unknown indication
     Dosage: UNK

REACTIONS (2)
  - Drug ineffective [Unknown]
  - Drug effect less than expected [Unknown]
